FAERS Safety Report 24873306 (Version 1)
Quarter: 2025Q1

REPORT INFORMATION
  Report Type: Spontaneous
  Country: US (occurrence: None)
  Receive Date: 20250121
  Receipt Date: 20250121
  Transmission Date: 20250408
  Serious: Yes (Hospitalization)
  Sender: FDA-CTU
  Company Number: None

PATIENT
  Sex: Male

DRUGS (11)
  1. TACROLIMUS [Suspect]
     Active Substance: TACROLIMUS
     Indication: Liver transplant
     Dosage: FREQUENCY : DAILY;?FREQ: TAKE 2 CAPSULES (2 MG TOTAL) BY MOUTH DAILY WITH BREAKFAST AND 1 CAPSULE (1 MG TOTAL) EVERY ?EVENING.?
     Route: 048
     Dates: start: 20241024
  2. AZATHIOPRINE [Concomitant]
     Active Substance: AZATHIOPRINE
  3. CARVEDILOL [Concomitant]
     Active Substance: CARVEDILOL
  4. DULOXETINE [Concomitant]
     Active Substance: DULOXETINE
  5. EVEROLIMUS [Concomitant]
     Active Substance: EVEROLIMUS
  6. FARXIGA [Concomitant]
     Active Substance: DAPAGLIFLOZIN PROPANEDIOL
  7. ACETAMINOPHEN\HYDROCODONE [Concomitant]
     Active Substance: ACETAMINOPHEN\HYDROCODONE
  8. LIDOCAINE PAD 5% [Concomitant]
  9. METHICARBAM [Concomitant]
  10. METOPROLOL TARTRATE [Concomitant]
     Active Substance: METOPROLOL TARTRATE
  11. MYCOPHENOLATE MOFETIL [Concomitant]
     Active Substance: MYCOPHENOLATE MOFETIL

REACTIONS (7)
  - Nausea [None]
  - Vomiting [None]
  - Abdominal pain upper [None]
  - Abdominal discomfort [None]
  - Therapy interrupted [None]
  - Dyspepsia [None]
  - Hospitalisation [None]
